FAERS Safety Report 18727425 (Version 2)
Quarter: 2021Q1

REPORT INFORMATION
  Report Type: Spontaneous
  Country: US (occurrence: US)
  Receive Date: 20210112
  Receipt Date: 20210120
  Transmission Date: 20210419
  Serious: Yes (Other)
  Sender: FDA-Public Use
  Company Number: US-009507513-2101USA001706

PATIENT
  Age: 24 Year
  Sex: Female
  Weight: 87.53 kg

DRUGS (1)
  1. NEXPLANON [Suspect]
     Active Substance: ETONOGESTREL
     Indication: CONTRACEPTION
     Dosage: 1 IMPLANT (68 MG), UPPER INNER LEFT ARM EXTREMITY; DURATION: 3 YEARS
     Route: 059
     Dates: start: 20201229

REACTIONS (2)
  - Implant site cellulitis [Recovered/Resolved]
  - Implant site irritation [Recovering/Resolving]

NARRATIVE: CASE EVENT DATE: 20201230
